FAERS Safety Report 8548738-9 (Version None)
Quarter: 2012Q3

REPORT INFORMATION
  Report Type: 
  Country: None (occurrence: None)
  Receive Date: 20120730
  Receipt Date: 20120724
  Transmission Date: 20120928
  Serious: No
  Sender: FDA-Public Use
  Company Number: PHHY2012BR043344

PATIENT
  Sex: Male
  Weight: 80 kg

DRUGS (1)
  1. EXELON [Suspect]
     Indication: DEMENTIA ALZHEIMER'S TYPE
     Dosage: 2 DF, QD
     Route: 048

REACTIONS (4)
  - DIZZINESS [None]
  - INJURY [None]
  - FALL [None]
  - ABDOMINAL PAIN UPPER [None]
